FAERS Safety Report 5778110-6 (Version None)
Quarter: 2008Q2

REPORT INFORMATION
  Report Type: 
  Country: None (occurrence: None)
  Receive Date: 20080617
  Receipt Date: 20080617
  Transmission Date: 20081010
  Serious: Yes (Hospitalization)
  Sender: FDA-Public Use
  Company Number: None

PATIENT
  Age: 78 Year
  Sex: Male
  Weight: 124 kg

DRUGS (10)
  1. NILUTAMIDE 150 MG [Suspect]
     Indication: PROSTATE CANCER
     Dosage: 150 MG DAILY PO
     Route: 048
     Dates: start: 20080226, end: 20080509
  2. DIGOXIN [Concomitant]
  3. SIMVASTATIN [Concomitant]
  4. CARVEDILOL [Concomitant]
  5. DILTIAZEM HCL [Concomitant]
  6. NILANDRON [Concomitant]
  7. FRAGMIN [Concomitant]
  8. ASPIRIN [Concomitant]
  9. VITAMIN C + D [Concomitant]
  10. LUPRON [Concomitant]

REACTIONS (1)
  - INTERSTITIAL LUNG DISEASE [None]
